FAERS Safety Report 7703780-2 (Version None)
Quarter: 2011Q3

REPORT INFORMATION
  Report Type: 
  Country: None (occurrence: None)
  Receive Date: 20110823
  Receipt Date: 20110812
  Transmission Date: 20111222
  Serious: Yes (Hospitalization)
  Sender: FDA-Public Use
  Company Number: US-JNJFOC-20110710775

PATIENT
  Sex: Female
  Weight: 138.35 kg

DRUGS (1)
  1. INFLIXIMAB, RECOMBINANT [Suspect]
     Indication: PSORIASIS
     Route: 042
     Dates: start: 20091001

REACTIONS (5)
  - CARDIAC FAILURE CONGESTIVE [None]
  - RENAL FAILURE ACUTE [None]
  - PNEUMONIA STAPHYLOCOCCAL [None]
  - INFUSION SITE REACTION [None]
  - SEPTIC EMBOLUS [None]
